FAERS Safety Report 14145369 (Version 3)
Quarter: 2017Q4

REPORT INFORMATION
  Report Type: Spontaneous
  Country: US (occurrence: US)
  Receive Date: 20171031
  Receipt Date: 20171222
  Transmission Date: 20180321
  Serious: No
  Sender: FDA-Public Use
  Company Number: US-ASTRAZENECA-2017SF09923

PATIENT
  Age: 6 Year
  Sex: Female

DRUGS (1)
  1. PULMICORT FLEXHALER [Suspect]
     Active Substance: BUDESONIDE
     Indication: ASTHMA
     Dosage: 90 MCG FOR ASTHMA TAKING 2 PUFFS AT NIGHT
     Route: 055
     Dates: start: 201709

REACTIONS (7)
  - Condition aggravated [Unknown]
  - Intentional product misuse [Unknown]
  - Underdose [Unknown]
  - Drug dispensing error [Unknown]
  - Device malfunction [Unknown]
  - Off label use [Unknown]
  - Device failure [Unknown]
